FAERS Safety Report 17607790 (Version 1)
Quarter: 2020Q1

REPORT INFORMATION
  Report Type: Spontaneous
  Country: CL (occurrence: CL)
  Receive Date: 20200331
  Receipt Date: 20200331
  Transmission Date: 20200409
  Serious: Yes (Other)
  Sender: FDA-Public Use
  Company Number: CL-US-PROVELL PHARMACEUTICALS LLC-9154046

PATIENT

DRUGS (1)
  1. EUTHYROX [Suspect]
     Active Substance: LEVOTHYROXINE SODIUM
     Indication: HYPOTHYROIDISM

REACTIONS (3)
  - Thyroid mass [Recovering/Resolving]
  - Depressed mood [Unknown]
  - Bipolar disorder [Unknown]
